FAERS Safety Report 19577138 (Version 2)
Quarter: 2021Q3

REPORT INFORMATION
  Report Type: Spontaneous
  Country: US (occurrence: US)
  Receive Date: 20210719
  Receipt Date: 20210915
  Transmission Date: 20211014
  Serious: Yes (Other)
  Sender: FDA-Public Use
  Company Number: US-BAYER-2021-174899

PATIENT
  Sex: Male

DRUGS (1)
  1. GADOBUTROL. [Suspect]
     Active Substance: GADOBUTROL
     Indication: EPIDURAL INJECTION
     Dosage: UNK, ONCE

REACTIONS (7)
  - Confusional state [Recovered/Resolved]
  - Aphasia [Recovered/Resolved]
  - Neurotoxicity [Recovered/Resolved]
  - Incorrect route of product administration [None]
  - Generalised tonic-clonic seizure [Recovered/Resolved]
  - Headache [Recovered/Resolved]
  - Off label use [None]
